FAERS Safety Report 7973917-9 (Version None)
Quarter: 2011Q4

REPORT INFORMATION
  Report Type: 
  Country: None (occurrence: None)
  Receive Date: 20111213
  Receipt Date: 20111130
  Transmission Date: 20120403
  Serious: Yes (Hospitalization)
  Sender: FDA-Public Use
  Company Number: FR-ROCHE-1017982

PATIENT
  Sex: Male

DRUGS (9)
  1. ATROPINE [Concomitant]
     Dates: start: 20100520, end: 20100522
  2. FLUOROURACIL [Concomitant]
     Route: 040
     Dates: start: 20100520, end: 20100522
  3. AVASTIN [Suspect]
     Indication: PRODUCT USED FOR UNKNOWN INDICATION
     Route: 042
     Dates: start: 20100520
  4. METHYLPREDNISOLONE [Concomitant]
     Dates: start: 20100520, end: 20100522
  5. LEVOLEUCOVORIN CALCIUM [Concomitant]
     Dates: start: 20100520, end: 20100522
  6. FLUOROURACIL [Concomitant]
     Dates: start: 20100520, end: 20100522
  7. EMEND [Concomitant]
     Dates: start: 20100520, end: 20100522
  8. ONDANSETRON [Concomitant]
     Dates: start: 20100520, end: 20100522
  9. IRINOTECAN HCL [Concomitant]
     Dates: start: 20100520, end: 20100522

REACTIONS (1)
  - COLITIS ISCHAEMIC [None]
